FAERS Safety Report 15005757 (Version 1)
Quarter: 2018Q2

REPORT INFORMATION
  Report Type: Spontaneous
  Country: US (occurrence: US)
  Receive Date: 20180521
  Receipt Date: 20180521
  Transmission Date: 20180711
  Serious: No
  Sender: FDA-Public Use
  Company Number: None

PATIENT
  Sex: Female

DRUGS (2)
  1. OTREXUP [Suspect]
     Active Substance: METHOTREXATE
     Indication: CONNECTIVE TISSUE DISORDER
     Route: 058
     Dates: start: 201804
  2. OTREXUP [Suspect]
     Active Substance: METHOTREXATE
     Indication: BREAST FIBROSIS
     Route: 058
     Dates: start: 201804

REACTIONS (1)
  - Kidney infection [None]
